FAERS Safety Report 7445653-9 (Version None)
Quarter: 2011Q2

REPORT INFORMATION
  Report Type: 
  Country: None (occurrence: None)
  Receive Date: 20110429
  Receipt Date: 20110426
  Transmission Date: 20111010
  Serious: Yes (Other)
  Sender: FDA-Public Use
  Company Number: US-AMGEN-QUU424630

PATIENT
  Sex: Female

DRUGS (2)
  1. NPLATE [Suspect]
     Dates: start: 20091214
  2. NPLATE [Suspect]
     Indication: IDIOPATHIC THROMBOCYTOPENIC PURPURA
     Dosage: 56 A?G, UNK
     Dates: start: 20091214, end: 20100721

REACTIONS (1)
  - RED BLOOD CELL ABNORMALITY [None]
